FAERS Safety Report 17467390 (Version 3)
Quarter: 2020Q1

REPORT INFORMATION
  Report Type: Spontaneous
  Country: US (occurrence: US)
  Receive Date: 20200227
  Receipt Date: 20200331
  Transmission Date: 20200409
  Serious: Yes (Other)
  Sender: FDA-Public Use
  Company Number: US-PFIZER INC-2020086838

PATIENT
  Age: 78 Year
  Sex: Female

DRUGS (1)
  1. PREMPRO [Suspect]
     Active Substance: ESTROGENS, CONJUGATED\MEDROXYPROGESTERONE ACETATE
     Dosage: UNK

REACTIONS (10)
  - Gait inability [Unknown]
  - Hypoacusis [Unknown]
  - Pain in extremity [Unknown]
  - Osteitis deformans [Unknown]
  - Gait disturbance [Unknown]
  - Malaise [Unknown]
  - Hypersensitivity [Unknown]
  - Cough [Unknown]
  - Pyrexia [Unknown]
  - Influenza [Unknown]
